FAERS Safety Report 15360361 (Version 3)
Quarter: 2018Q3

REPORT INFORMATION
  Report Type: Spontaneous
  Country: US (occurrence: US)
  Receive Date: 20180907
  Receipt Date: 20180912
  Transmission Date: 20181010
  Serious: No
  Sender: FDA-Public Use
  Company Number: US-PFIZER INC-2018359683

PATIENT
  Age: 60 Year
  Sex: Female
  Weight: 120 kg

DRUGS (3)
  1. CYMBALTA [Concomitant]
     Active Substance: DULOXETINE HYDROCHLORIDE
     Dosage: UNK
  2. LYRICA [Suspect]
     Active Substance: PREGABALIN
     Indication: DIABETES MELLITUS
  3. LYRICA [Suspect]
     Active Substance: PREGABALIN
     Indication: DIABETIC NEUROPATHY
     Dosage: 300 MG, 2X/DAY
     Route: 048
     Dates: end: 20180823

REACTIONS (10)
  - Eye pruritus [Recovered/Resolved]
  - Hypoaesthesia [Unknown]
  - Anxiety [Unknown]
  - Dyskinesia [Unknown]
  - Withdrawal syndrome [Unknown]
  - Pain in extremity [Unknown]
  - Pruritus generalised [Recovered/Resolved]
  - Restlessness [Unknown]
  - Influenza like illness [Unknown]
  - Paraesthesia [Unknown]
